FAERS Safety Report 8826007 (Version 3)
Quarter: 2012Q4

REPORT INFORMATION
  Report Type: 
  Country: US (occurrence: US)
  Receive Date: 20121005
  Receipt Date: 20121123
  Transmission Date: 20130627
  Serious: Yes (Other)
  Sender: FDA-Public Use
  Company Number: US-PFIZER INC-2012245911

PATIENT
  Age: 69 Year
  Sex: Female
  Weight: 72 kg

DRUGS (5)
  1. EFFEXOR XR [Suspect]
     Indication: DEPRESSION
     Dosage: UNK, 1x/day
     Route: 048
  2. VITAMIN C [Concomitant]
     Dosage: 1000 cc, UNK
  3. ASPIRIN [Concomitant]
     Dosage: 81 mg, UNK
  4. ADVAIR [Concomitant]
     Dosage: UNK
  5. CALCIUM [Concomitant]
     Dosage: 2000 cc, UNK

REACTIONS (3)
  - Liver disorder [Unknown]
  - Hypertension [Unknown]
  - Insomnia [Unknown]
